FAERS Safety Report 6820560-0 (Version None)
Quarter: 2010Q3

REPORT INFORMATION
  Report Type: 
  Country: None (occurrence: None)
  Receive Date: 20100707
  Receipt Date: 20100621
  Transmission Date: 20110219
  Serious: Yes (Hospitalization)
  Sender: FDA-Public Use
  Company Number: A0790922A

PATIENT
  Age: 64 Year
  Sex: Male
  Weight: 81.8 kg

DRUGS (2)
  1. AVANDIA [Suspect]
     Route: 048
  2. AVANDARYL [Suspect]
     Route: 048

REACTIONS (4)
  - ACUTE CORONARY SYNDROME [None]
  - CORONARY ARTERY OCCLUSION [None]
  - CORONARY ARTERY THROMBOSIS [None]
  - DIASTOLIC DYSFUNCTION [None]
